FAERS Safety Report 5271985-9 (Version None)
Quarter: 2007Q1

REPORT INFORMATION
  Report Type: 
  Country: None (occurrence: None)
  Receive Date: 20061214
  Receipt Date: 20060330
  Transmission Date: 20070707
  Serious: Yes (Other)
  Sender: FDA-Public Use
  Company Number: 2006045402

PATIENT
  Age: 38 Year
  Sex: Female

DRUGS (1)
  1. BEXTRA [Suspect]
     Indication: PAIN IN EXTREMITY
     Dosage: 20 MG (1 IN 1 D)
     Dates: start: 20040511, end: 20041011

REACTIONS (1)
  - MYOCARDIAL INFARCTION [None]
